FAERS Safety Report 4818500-9 (Version None)
Quarter: 2005Q4

REPORT INFORMATION
  Report Type: 
  Country: None (occurrence: None)
  Receive Date: 20051031
  Receipt Date: 20051031
  Transmission Date: 20060501
  Serious: Yes (Hospitalization)
  Sender: FDA-Public Use
  Company Number: None

PATIENT
  Age: 69 Year
  Sex: Male
  Weight: 80.2867 kg

DRUGS (1)
  1. MORPHINE [Suspect]
     Dosage: 14 MG

REACTIONS (4)
  - AGITATION [None]
  - BRONCHIAL OBSTRUCTION [None]
  - HAEMOPTYSIS [None]
  - RESPIRATORY DEPRESSION [None]
